FAERS Safety Report 18708615 (Version 2)
Quarter: 2021Q1

REPORT INFORMATION
  Report Type: Spontaneous
  Country: MD (occurrence: MD)
  Receive Date: 20210106
  Receipt Date: 20210115
  Transmission Date: 20210419
  Serious: Yes (Other)
  Sender: FDA-Public Use
  Company Number: MD-TAKEDA-2021TUS000601

PATIENT
  Age: 56 Year
  Sex: Male

DRUGS (1)
  1. ICLUSIG [Suspect]
     Active Substance: PONATINIB
     Indication: CHRONIC MYELOID LEUKAEMIA
     Dosage: 15 MILLIGRAM, TID
     Route: 048
     Dates: start: 20201027

REACTIONS (5)
  - Disease progression [Unknown]
  - Abdominal pain [Recovered/Resolved]
  - Chronic myeloid leukaemia [Unknown]
  - Fatigue [Recovered/Resolved]
  - Drug ineffective [Unknown]

NARRATIVE: CASE EVENT DATE: 20201023
